FAERS Safety Report 13422764 (Version 1)
Quarter: 2017Q2

REPORT INFORMATION
  Report Type: Spontaneous
  Country: US (occurrence: US)
  Receive Date: 20170407
  Receipt Date: 20170407
  Transmission Date: 20170830
  Serious: Yes (Hospitalization)
  Sender: FDA-Public Use
  Company Number: None

PATIENT
  Age: 31 Year
  Sex: Male
  Weight: 101.88 kg

DRUGS (1)
  1. OMEPRAZOLE. [Suspect]
     Active Substance: OMEPRAZOLE
     Indication: GASTROOESOPHAGEAL REFLUX DISEASE
     Dosage: 20 MG AM PO
     Route: 048
     Dates: start: 20161031, end: 20161217

REACTIONS (14)
  - Abdominal pain [None]
  - Mental status changes [None]
  - Toxicity to various agents [None]
  - Nephritis [None]
  - Gait disturbance [None]
  - Dehydration [None]
  - Vomiting [None]
  - Gastroenteritis [None]
  - Nausea [None]
  - Polydipsia [None]
  - Acute kidney injury [None]
  - Muscle spasms [None]
  - Disease recurrence [None]
  - Polyuria [None]

NARRATIVE: CASE EVENT DATE: 20161214
